FAERS Safety Report 17534701 (Version 1)
Quarter: 2020Q1

REPORT INFORMATION
  Report Type: Spontaneous
  Country: US (occurrence: US)
  Receive Date: 20200312
  Receipt Date: 20200312
  Transmission Date: 20200409
  Serious: No
  Sender: FDA-Public Use
  Company Number: US-BRISTOL-MYERS SQUIBB COMPANY-BMS-2020-021819

PATIENT
  Sex: Female
  Weight: 50.35 kg

DRUGS (3)
  1. SODIUM BICARBONATE. [Concomitant]
     Active Substance: SODIUM BICARBONATE
     Indication: PRODUCT USED FOR UNKNOWN INDICATION
     Dosage: UNK
     Route: 065
  2. ELIQUIS [Suspect]
     Active Substance: APIXABAN
     Indication: THROMBOSIS
     Dosage: 2.5 MILLIGRAM, BID
     Route: 048
     Dates: start: 201902
  3. MAGNESIUM [Concomitant]
     Active Substance: MAGNESIUM
     Indication: PRODUCT USED FOR UNKNOWN INDICATION
     Dosage: UNK
     Route: 065

REACTIONS (10)
  - Insomnia [Unknown]
  - Intentional product use issue [Unknown]
  - Swelling face [Unknown]
  - Toothache [Unknown]
  - Peripheral swelling [Unknown]
  - Chest discomfort [Unknown]
  - Somnolence [Unknown]
  - Wheezing [Unknown]
  - Swelling [Unknown]
  - Muscle tightness [Unknown]
